FAERS Safety Report 9769417 (Version 1)
Quarter: 2013Q3

REPORT INFORMATION
  Report Type: Spontaneous
  Country: US (occurrence: None)
  Receive Date: 20130909
  Receipt Date: 20130909
  Transmission Date: 20140515
  Serious: Yes (Disabling, Other)
  Sender: FDA-Public Use
  Company Number: 1308-1039

PATIENT
  Age: 86 Year
  Sex: Female

DRUGS (5)
  1. EYLEA (AFLIBERCEPT) (INJECTION) (AFLIBERCEPT) [Suspect]
     Indication: AGE-RELATED MACULAR DEGENERATION
     Dates: start: 20130730
  2. HYZAAR [Concomitant]
  3. SIMVASTATIN [Concomitant]
  4. SYNTHROID (LEVOTHYROXINE SODIUM) [Concomitant]
  5. COREG (CARVEDILOL) [Concomitant]

REACTIONS (3)
  - Blindness [None]
  - Streptococcus test positive [None]
  - Eye infection bacterial [None]
